FAERS Safety Report 6455990-2 (Version None)
Quarter: 2009Q4

REPORT INFORMATION
  Report Type: 
  Country: None (occurrence: None)
  Receive Date: 20091125
  Receipt Date: 20091116
  Transmission Date: 20100525
  Serious: No
  Sender: FDA-Public Use
  Company Number: US-JNJFOC-20091105325

PATIENT
  Sex: Male
  Weight: 65.77 kg

DRUGS (5)
  1. DURAGESIC-100 [Suspect]
     Indication: PROCEDURAL COMPLICATION
     Route: 062
  2. LORCET-HD [Concomitant]
     Indication: BREAKTHROUGH PAIN
     Dosage: 75/650 MG 4 TIMES DAILY
     Route: 048
  3. PHENERGAN [Concomitant]
     Indication: NAUSEA
     Route: 048
  4. ELAVIL [Concomitant]
     Indication: SLEEP DISORDER
     Route: 048
  5. DILANTIN [Concomitant]
     Indication: CONVULSION
     Route: 048

REACTIONS (5)
  - COORDINATION ABNORMAL [None]
  - DYSARTHRIA [None]
  - MYDRIASIS [None]
  - PRODUCT ADHESION ISSUE [None]
  - WRONG TECHNIQUE IN DRUG USAGE PROCESS [None]
